FAERS Safety Report 5958414-4 (Version None)
Quarter: 2008Q4

REPORT INFORMATION
  Report Type: 
  Country: None (occurrence: None)
  Receive Date: 20081119
  Receipt Date: 20081111
  Transmission Date: 20090506
  Serious: Yes (Other)
  Sender: FDA-Public Use
  Company Number: US-JNJFOC-20081102869

PATIENT
  Age: 10 Year
  Sex: Female
  Weight: 45.36 kg

DRUGS (1)
  1. TYLENOL COLD MULTI-SYMPTOM DAYTIME RAPID RELEASE [Suspect]
     Indication: NASOPHARYNGITIS
     Route: 048

REACTIONS (2)
  - HYPERSENSITIVITY [None]
  - INCORRECT DRUG DOSAGE FORM ADMINISTERED [None]
